FAERS Safety Report 9202741 (Version 3)
Quarter: 2013Q2

REPORT INFORMATION
  Report Type: Spontaneous
  Country: US (occurrence: US)
  Receive Date: 20130401
  Receipt Date: 20130508
  Transmission Date: 20140414
  Serious: Yes (Other)
  Sender: FDA-Public Use
  Company Number: US-PFIZER INC-2013101845

PATIENT
  Age: 33 Year
  Sex: Female
  Weight: 72.58 kg

DRUGS (1)
  1. MOTRIN IB [Suspect]
     Indication: PAIN
     Dosage: 2 DF, SINGLE ,200 MG/TABLET
     Route: 048
     Dates: end: 201209

REACTIONS (8)
  - Asthma [Recovered/Resolved]
  - Therapeutic response delayed [Unknown]
  - Hypersensitivity [Recovered/Resolved]
  - Dizziness [Recovered/Resolved]
  - Presyncope [Recovered/Resolved]
  - Sneezing [Recovered/Resolved]
  - Rhinorrhoea [Unknown]
  - Cough [Unknown]
